FAERS Safety Report 22324943 (Version 1)
Quarter: 2023Q2

REPORT INFORMATION
  Report Type: Spontaneous
  Country: US (occurrence: US)
  Receive Date: 20230516
  Receipt Date: 20230516
  Transmission Date: 20230721
  Serious: No
  Sender: FDA-Public Use
  Company Number: US-PFIZER INC-202200810190

PATIENT
  Age: 59 Year
  Sex: Female

DRUGS (1)
  1. IBRANCE [Suspect]
     Active Substance: PALBOCICLIB
     Dosage: UNK
     Dates: start: 20220528

REACTIONS (4)
  - Asthenia [Unknown]
  - Dizziness [Unknown]
  - Product dispensing error [Unknown]
  - Wrong dosage formulation [Unknown]

NARRATIVE: CASE EVENT DATE: 20220101
